FAERS Safety Report 18554447 (Version 1)
Quarter: 2020Q4

REPORT INFORMATION
  Report Type: Spontaneous
  Country: US (occurrence: US)
  Receive Date: 20201127
  Receipt Date: 20201127
  Transmission Date: 20210114
  Serious: No
  Sender: FDA-Public Use
  Company Number: US-TAKEDA-2020TUS049517

PATIENT
  Age: 28 Year
  Sex: Female
  Weight: 56.24 kg

DRUGS (4)
  1. MOTEGRITY [Suspect]
     Active Substance: PRUCALOPRIDE SUCCINATE
     Dosage: 0.5 MILLIGRAM, QD
     Route: 048
     Dates: start: 20201104
  2. ZOFRAN [Concomitant]
     Active Substance: ONDANSETRON HYDROCHLORIDE
     Indication: NAUSEA
     Dosage: 4 MILLIGRAM, PRN
     Route: 060
     Dates: start: 201701
  3. KLONOPIN [Concomitant]
     Active Substance: CLONAZEPAM
     Indication: PANIC DISORDER
     Dosage: 0.5 MILLIGRAM, PRN
     Route: 060
     Dates: start: 2014
  4. MOTEGRITY [Suspect]
     Active Substance: PRUCALOPRIDE SUCCINATE
     Indication: IMPAIRED GASTRIC EMPTYING
     Dosage: 2 MILLIGRAM, QD
     Route: 048
     Dates: start: 20201030, end: 20201103

REACTIONS (8)
  - Condition aggravated [Not Recovered/Not Resolved]
  - Agitation [Recovered/Resolved]
  - Thirst [Recovered/Resolved]
  - Wrong technique in product usage process [Not Recovered/Not Resolved]
  - Muscle twitching [Not Recovered/Not Resolved]
  - Hypoaesthesia [Recovering/Resolving]
  - Dysphemia [Not Recovered/Not Resolved]
  - Product dose omission issue [Recovered/Resolved]

NARRATIVE: CASE EVENT DATE: 20201031
